FAERS Safety Report 16299915 (Version 1)
Quarter: 2019Q2

REPORT INFORMATION
  Report Type: Report from Study
  Country: US (occurrence: US)
  Receive Date: 20190510
  Receipt Date: 20190510
  Transmission Date: 20190711
  Serious: Yes (Other)
  Sender: FDA-Public Use
  Company Number: US-UCBSA-2018057177

PATIENT
  Age: 54 Year
  Sex: Male

DRUGS (3)
  1. LACOSAMIDE. [Suspect]
     Active Substance: LACOSAMIDE
     Indication: SEIZURE
     Dosage: UNK
  2. LACOSAMIDE. [Suspect]
     Active Substance: LACOSAMIDE
     Indication: PARTIAL SEIZURES
     Dosage: 100 MG, 2X/DAY (BID)
     Route: 048
  3. LACOSAMIDE. [Suspect]
     Active Substance: LACOSAMIDE
     Indication: EPILEPSY

REACTIONS (8)
  - Seizure [Recovered/Resolved]
  - Insomnia [Not Recovered/Not Resolved]
  - Anxiety [Not Recovered/Not Resolved]
  - Vision blurred [Not Recovered/Not Resolved]
  - Dizziness [Not Recovered/Not Resolved]
  - Syncope [Not Recovered/Not Resolved]
  - Sleep disorder [Not Recovered/Not Resolved]
  - Paranoia [Not Recovered/Not Resolved]

NARRATIVE: CASE EVENT DATE: 2018
